FAERS Safety Report 5286770-1 (Version None)
Quarter: 2007Q1

REPORT INFORMATION
  Report Type: 
  Country: None (occurrence: None)
  Receive Date: 20070116
  Receipt Date: 20061114
  Transmission Date: 20070707
  Serious: No
  Sender: FDA-Public Use
  Company Number: 2006SP004048

PATIENT
  Age: 46 Year
  Sex: Female
  Weight: 49.4421 kg

DRUGS (9)
  1. LUNESTA [Suspect]
     Indication: INSOMNIA
     Dosage: 3 MG; 1X; ORAL
     Route: 048
     Dates: start: 20061110, end: 20061110
  2. ZOMIG [Concomitant]
  3. OXYCONTIN [Concomitant]
  4. PROZAC [Concomitant]
  5. NEXIUM [Concomitant]
  6. REQUIP [Concomitant]
  7. FLEXERIL [Concomitant]
  8. SKELAXIN [Concomitant]
  9. AMBIEN [Concomitant]

REACTIONS (5)
  - DYSGEUSIA [None]
  - HEADACHE [None]
  - INITIAL INSOMNIA [None]
  - NAUSEA [None]
  - VOMITING [None]
